FAERS Safety Report 8220298-1 (Version None)
Quarter: 2012Q1

REPORT INFORMATION
  Report Type: 
  Country: None (occurrence: None)
  Receive Date: 20120320
  Receipt Date: 20120315
  Transmission Date: 20120608
  Serious: No
  Sender: FDA-Public Use
  Company Number: US-PFIZER INC-2012068901

PATIENT
  Age: 88 Year
  Sex: Female

DRUGS (1)
  1. TOVIAZ [Suspect]
     Indication: INCONTINENCE
     Dosage: UNK

REACTIONS (2)
  - DIZZINESS [None]
  - TINNITUS [None]
